FAERS Safety Report 6726513-5 (Version None)
Quarter: 2010Q2

REPORT INFORMATION
  Report Type: 
  Country: None (occurrence: None)
  Receive Date: 20100514
  Receipt Date: 20100504
  Transmission Date: 20101027
  Serious: Yes (Other)
  Sender: FDA-Public Use
  Company Number: NL-GENENTECH-300808

PATIENT
  Sex: Female
  Weight: 58 kg

DRUGS (2)
  1. RITUXIMAB [Suspect]
     Indication: IDIOPATHIC THROMBOCYTOPENIC PURPURA
     Dosage: 750 MG/M2, UNK
     Route: 042
     Dates: start: 20100401
  2. CITALOPRAM [Concomitant]
     Indication: OVERWEIGHT
     Dosage: UNK
     Route: 048
     Dates: start: 20091212, end: 20100414

REACTIONS (2)
  - MYALGIA [None]
  - SKIN REACTION [None]
